FAERS Safety Report 8176453-2 (Version None)
Quarter: 2012Q1

REPORT INFORMATION
  Report Type: 
  Country: None (occurrence: None)
  Receive Date: 20120117
  Receipt Date: 20111116
  Transmission Date: 20120608
  Serious: Yes (Other)
  Sender: FDA-Public Use
  Company Number: 2011P1010909

PATIENT
  Age: 36 Year
  Sex: Female
  Weight: 72.5755 kg

DRUGS (6)
  1. MULTI-VITAMIN [Concomitant]
  2. LAMOTRIGINE [Suspect]
     Indication: POST-TRAUMATIC STRESS DISORDER
     Dosage: 25 MG;QD;PO 50 MG;QD;PO 12.5 MG;QOD;PO
     Route: 048
     Dates: start: 20110101, end: 20110101
  3. LAMOTRIGINE [Suspect]
     Indication: POST-TRAUMATIC STRESS DISORDER
     Dosage: 25 MG;QD;PO 50 MG;QD;PO 12.5 MG;QOD;PO
     Route: 048
     Dates: start: 20110101, end: 20111001
  4. LAMOTRIGINE [Suspect]
     Indication: POST-TRAUMATIC STRESS DISORDER
     Dosage: 25 MG;QD;PO 50 MG;QD;PO 12.5 MG;QOD;PO
     Route: 048
     Dates: start: 20110701, end: 20110101
  5. LAMOTRIGINE [Suspect]
     Indication: POST-TRAUMATIC STRESS DISORDER
     Dosage: 25 MG;QD;PO 50 MG;QD;PO 12.5 MG;QOD;PO
     Route: 048
     Dates: start: 20111001, end: 20111101
  6. KLONOPIN [Concomitant]

REACTIONS (11)
  - FEELING COLD [None]
  - HAEMATOCRIT DECREASED [None]
  - FATIGUE [None]
  - TREMOR [None]
  - CARBON DIOXIDE ABNORMAL [None]
  - DIZZINESS [None]
  - DRUG WITHDRAWAL SYNDROME [None]
  - FEELING ABNORMAL [None]
  - OFF LABEL USE [None]
  - INSOMNIA [None]
  - RED BLOOD CELL COUNT DECREASED [None]
